FAERS Safety Report 8530995-6 (Version None)
Quarter: 2012Q3

REPORT INFORMATION
  Report Type: 
  Country: None (occurrence: None)
  Receive Date: 20120723
  Receipt Date: 20120718
  Transmission Date: 20120928
  Serious: Yes (Other)
  Sender: FDA-Public Use
  Company Number: CA-ROCHE-1090583

PATIENT
  Sex: Female
  Weight: 60.382 kg

DRUGS (12)
  1. OMNARIS [Concomitant]
  2. MABTHERA [Suspect]
     Indication: SJOGREN'S SYNDROME
     Route: 042
     Dates: start: 20110825, end: 20111021
  3. ACTONEL [Concomitant]
  4. REACTINE (CANADA) [Concomitant]
  5. TYLENOL [Concomitant]
  6. ADVAIR DISKUS 100/50 [Concomitant]
  7. VENTOLIN [Concomitant]
  8. PLAQUENIL [Concomitant]
  9. CALCIUM CARBONATE [Concomitant]
  10. VIMOVO [Concomitant]
  11. NEXIUM [Concomitant]
  12. FLOVENT [Concomitant]

REACTIONS (1)
  - BREAST MASS [None]
